FAERS Safety Report 10502427 (Version 1)
Quarter: 2014Q4

REPORT INFORMATION
  Report Type: Spontaneous
  Country: US (occurrence: US)
  Receive Date: 20141007
  Receipt Date: 20141007
  Transmission Date: 20150528
  Serious: Yes (Hospitalization, Other)
  Sender: FDA-Public Use
  Company Number: US-ACTAVIS-2014-21265

PATIENT

DRUGS (1)
  1. PREDNISONE (WATSON LABORATORIES) [Suspect]
     Active Substance: PREDNISONE
     Indication: RHEUMATOID ARTHRITIS
     Dosage: UNK, UNKNOWN
     Route: 065
     Dates: start: 2007

REACTIONS (7)
  - Musculoskeletal discomfort [Unknown]
  - Arterial disorder [Unknown]
  - Pain in extremity [Unknown]
  - Bone loss [Unknown]
  - Bone disorder [Unknown]
  - Cardiac operation [Unknown]
  - Jaw operation [Unknown]

NARRATIVE: CASE EVENT DATE: 201208
